FAERS Safety Report 8926036 (Version 2)
Quarter: 2012Q4

REPORT INFORMATION
  Report Type: 
  Country: FR (occurrence: FR)
  Receive Date: 20121126
  Receipt Date: 20121211
  Transmission Date: 20130627
  Serious: Yes (Hospitalization)
  Sender: FDA-Public Use
  Company Number: FR-MERCK-1211FRA007453

PATIENT
  Age: 47 Year
  Sex: Female

DRUGS (3)
  1. AERIUS [Suspect]
     Indication: HYPERSENSITIVITY
     Dosage: 5 mg, qd
     Route: 048
     Dates: start: 20120403
  2. EPITOMAX [Suspect]
     Indication: NEURALGIA
     Dosage: 50 mg, qd
     Route: 048
     Dates: start: 201111
  3. ALLERGODIL [Suspect]
     Indication: PRODUCT USED FOR UNKNOWN INDICATION
     Dosage: UNK
     Dates: start: 20120403

REACTIONS (1)
  - Nephrolithiasis [Recovered/Resolved]
